FAERS Safety Report 4881766-3 (Version None)
Quarter: 2006Q1

REPORT INFORMATION
  Report Type: 
  Country: None (occurrence: None)
  Receive Date: 20060116
  Receipt Date: 20051212
  Transmission Date: 20060701
  Serious: Yes (Hospitalization, Other)
  Sender: FDA-Public Use
  Company Number: JP-ABBOTT-05P-087-0319434-00

PATIENT
  Sex: Male
  Weight: 15 kg

DRUGS (5)
  1. CEFZON [Suspect]
     Indication: BRONCHITIS ACUTE
     Route: 048
     Dates: start: 20051121, end: 20051125
  2. METOCLOPRAMIDE [Suspect]
     Indication: GASTROENTERITIS
     Route: 048
     Dates: start: 20051128, end: 20051128
  3. CEFACLOR [Suspect]
     Indication: GASTROENTERITIS
     Route: 048
     Dates: start: 20051128, end: 20051128
  4. CYPROHEPTADINE HCL [Suspect]
     Indication: GASTROENTERITIS
     Route: 048
     Dates: start: 20051128, end: 20051128
  5. CARBOCISTEINE [Concomitant]
     Indication: DRUG USE FOR UNKNOWN INDICATION
     Dates: start: 20051121, end: 20051125

REACTIONS (5)
  - DIARRHOEA [None]
  - HAEMATURIA [None]
  - HAEMOLYTIC ANAEMIA [None]
  - PALLOR [None]
  - PYREXIA [None]
